FAERS Safety Report 6262848-0 (Version None)
Quarter: 2009Q3

REPORT INFORMATION
  Report Type: 
  Country: None (occurrence: None)
  Receive Date: 20090708
  Receipt Date: 20090701
  Transmission Date: 20100115
  Serious: Yes (Hospitalization)
  Sender: FDA-Public Use
  Company Number: WAES 0906USA00661

PATIENT
  Age: 57 Year
  Sex: Female
  Weight: 78.0187 kg

DRUGS (3)
  1. DECADRON [Suspect]
     Indication: PROPHYLAXIS
     Dosage: 2 MG/DAILY/PO
     Route: 048
     Dates: start: 20090303, end: 20090404
  2. SUTENT [Suspect]
     Indication: BREAST CANCER
     Dosage: 25 MG/DAILY/PO
     Route: 048
     Dates: start: 20090402
  3. PACLITAXEL [Suspect]
     Indication: BREAST CANCER
     Dosage: 114 MG/WKY
     Dates: start: 20090402

REACTIONS (1)
  - PNEUMONIA PRIMARY ATYPICAL [None]
